FAERS Safety Report 7691907-0 (Version None)
Quarter: 2011Q3

REPORT INFORMATION
  Report Type: 
  Country: None (occurrence: None)
  Receive Date: 20110818
  Receipt Date: 20110808
  Transmission Date: 20111222
  Serious: Yes (Death, Other)
  Sender: FDA-Public Use
  Company Number: US-AMGEN-USASP2011040727

PATIENT
  Sex: Female

DRUGS (4)
  1. PREDNISONE [Concomitant]
  2. CORTICOSTEROIDS [Concomitant]
  3. DARBEPOETIN ALFA [Suspect]
     Indication: ANAEMIA
     Dosage: UNK
  4. BLOOD TRANSFUSION, AUXILIARY PRODUCTS [Concomitant]

REACTIONS (4)
  - THROMBOTIC THROMBOCYTOPENIC PURPURA [None]
  - HAEMOLYTIC URAEMIC SYNDROME [None]
  - NEOPLASM MALIGNANT [None]
  - NO THERAPEUTIC RESPONSE [None]
